FAERS Safety Report 10079834 (Version 2)
Quarter: 2014Q2

REPORT INFORMATION
  Report Type: Spontaneous
  Country: BR (occurrence: BR)
  Receive Date: 20140415
  Receipt Date: 20140428
  Transmission Date: 20141212
  Serious: Yes (Other)
  Sender: FDA-Public Use
  Company Number: BR-ABBVIE-14P-020-1226476-00

PATIENT
  Sex: Female

DRUGS (5)
  1. DEPAKOTE ER [Suspect]
     Indication: PRODUCT USED FOR UNKNOWN INDICATION
     Dosage: ONCE A DAY
  2. URBANIL [Suspect]
     Indication: PRODUCT USED FOR UNKNOWN INDICATION
     Dosage: FORM STRENGTH: ^20^ (NO UNIT WAS PROVIDED); ONCE A DAY
  3. URBANIL [Suspect]
     Dosage: TWICE A DAY
  4. OXCARBAZEPINE [Suspect]
     Indication: PRODUCT USED FOR UNKNOWN INDICATION
     Dosage: FORM STRENGTH: ^600^ (NO UNIT WAS PROVIDED); 3 TIMES PER DAY
  5. LAMITOR [Suspect]
     Indication: PRODUCT USED FOR UNKNOWN INDICATION
     Dosage: FORM STRENGTH: ^100^ (NO UNIT WAS PROVIDED); 4 TIMES PER DAY

REACTIONS (5)
  - Convulsion [Unknown]
  - Coma [Unknown]
  - Convulsion [Unknown]
  - Posture abnormal [Unknown]
  - Exophthalmos [Unknown]
